FAERS Safety Report 10749614 (Version 1)
Quarter: 2015Q1

REPORT INFORMATION
  Report Type: Report from Study
  Country: CA (occurrence: CA)
  Receive Date: 20150129
  Receipt Date: 20150129
  Transmission Date: 20150721
  Serious: Yes (Hospitalization)
  Sender: FDA-Public Use
  Company Number: CA-PFIZER INC-2015031747

PATIENT
  Age: 62 Year
  Sex: Male
  Weight: 90 kg

DRUGS (2)
  1. LOMOTIL [Suspect]
     Active Substance: ATROPINE SULFATE\DIPHENOXYLATE HYDROCHLORIDE
     Indication: FUNCTIONAL GASTROINTESTINAL DISORDER
  2. REMICADE [Suspect]
     Active Substance: INFLIXIMAB
     Indication: CROHN^S DISEASE
     Dosage: 400 MG, 1 EVERY 7 WEEKS
     Route: 042

REACTIONS (1)
  - Intestinal obstruction [Recovered/Resolved]
